FAERS Safety Report 4882316-8 (Version None)
Quarter: 2006Q1

REPORT INFORMATION
  Report Type: 
  Country: None (occurrence: None)
  Receive Date: 20060112
  Receipt Date: 20060105
  Transmission Date: 20060701
  Serious: Yes (Life-Threatening, Hospitalization)
  Sender: FDA-Public Use
  Company Number: 2006-00053

PATIENT
  Age: 64 Year
  Sex: Male

DRUGS (4)
  1. MORPHINE SULFATE [Suspect]
     Indication: LIMB TRAUMATIC AMPUTATION
     Dosage: SEE IMAGE
     Route: 042
     Dates: start: 19931201, end: 19990101
  2. MORPHINE SULFATE [Suspect]
     Indication: PHANTOM PAIN
     Dosage: SEE IMAGE
     Route: 042
     Dates: start: 19931201, end: 19990101
  3. MORPHINE SULFATE [Suspect]
     Indication: LIMB TRAUMATIC AMPUTATION
     Dosage: SEE IMAGE
     Route: 042
     Dates: start: 19990101, end: 20010801
  4. MORPHINE SULFATE [Suspect]
     Indication: PHANTOM PAIN
     Dosage: SEE IMAGE
     Route: 042
     Dates: start: 19990101, end: 20010801

REACTIONS (3)
  - DRUG INEFFECTIVE [None]
  - NERVOUS SYSTEM DISORDER [None]
  - RESPIRATORY DEPRESSION [None]
